FAERS Safety Report 10078387 (Version 1)
Quarter: 2014Q1

REPORT INFORMATION
  Report Type: Spontaneous
  Country: US (occurrence: None)
  Receive Date: 20140331
  Receipt Date: 20140331
  Transmission Date: 20141002
  Serious: Yes (Death)
  Sender: FDA-Public Use
  Company Number: UTC-045286

PATIENT
  Age: 65 Year
  Sex: Male
  Weight: 58.2 kg

DRUGS (2)
  1. REMODULIN [Suspect]
     Indication: PULMONARY ARTERIAL HYPERTENSION
     Dosage: 118.08UG/KG (0.082 UG/KG 1 IN 1 MIN), INTRAVENOUS DRIP
     Route: 041
     Dates: start: 20140131
  2. ADCIRCA (TADALAFIL) [Concomitant]

REACTIONS (1)
  - Death [None]
